FAERS Safety Report 9375058 (Version 1)
Quarter: 2013Q2

REPORT INFORMATION
  Report Type: Report from Study
  Country: CO (occurrence: CO)
  Receive Date: 20130628
  Receipt Date: 20130628
  Transmission Date: 20140414
  Serious: Yes (Death, Hospitalization)
  Sender: FDA-Public Use
  Company Number: CO-ASTRAZENECA-2013SE48642

PATIENT
  Age: 77 Year
  Sex: Female

DRUGS (1)
  1. BRILINTA [Suspect]
     Route: 048
     Dates: start: 20130522

REACTIONS (1)
  - Cardiac arrest [Fatal]
